FAERS Safety Report 9777714 (Version 1)
Quarter: 2013Q4

REPORT INFORMATION
  Report Type: Report from Study
  Country: US (occurrence: US)
  Receive Date: 20131223
  Receipt Date: 20131223
  Transmission Date: 20140711
  Serious: Yes (Death)
  Sender: FDA-Public Use
  Company Number: US-ROCHE-1323652

PATIENT
  Age: 67 Year
  Sex: Male
  Weight: 58.57 kg

DRUGS (3)
  1. AVASTIN [Suspect]
     Indication: SMALL INTESTINE CARCINOMA
     Route: 042
     Dates: start: 20120409, end: 20120521
  2. AVASTIN [Suspect]
     Route: 042
     Dates: end: 20120521
  3. CAMPTOSAR [Concomitant]
     Dosage: ALSO RECEIVED ON 30/APR/2012 AND 21/MAY/2012.
     Route: 042
     Dates: start: 20120409

REACTIONS (1)
  - Disease progression [Fatal]
